FAERS Safety Report 6473804-1 (Version None)
Quarter: 2009Q4

REPORT INFORMATION
  Report Type: 
  Country: None (occurrence: None)
  Receive Date: 20091204
  Receipt Date: 20091103
  Transmission Date: 20100525
  Serious: No
  Sender: FDA-Public Use
  Company Number: US-BAYER-200939131NA

PATIENT
  Age: 39 Year
  Sex: Female
  Weight: 57 kg

DRUGS (2)
  1. ULTRAVIST 150 [Suspect]
     Indication: COMPUTERISED TOMOGRAM
     Dosage: TOTAL DAILY DOSE: 115 ML  UNIT DOSE: 125 ML
     Route: 042
     Dates: start: 20091028, end: 20091028
  2. REDI-CAT [Concomitant]
     Indication: SCAN WITH CONTRAST
     Dates: start: 20091027, end: 20091027

REACTIONS (2)
  - HYPOAESTHESIA [None]
  - NASAL CONGESTION [None]
